FAERS Safety Report 4881847-4 (Version None)
Quarter: 2006Q1

REPORT INFORMATION
  Report Type: 
  Country: None (occurrence: None)
  Receive Date: 20060112
  Receipt Date: 20060103
  Transmission Date: 20060701
  Serious: Yes (Other)
  Sender: FDA-Public Use
  Company Number: 2005134073

PATIENT
  Age: 92 Year
  Sex: Female

DRUGS (2)
  1. XALATAN [Suspect]
     Indication: GLAUCOMA
     Dosage: (1 DROP, 1 IN 1 D), OPHTHALMIC/10-15 YEARS AGO
     Route: 047
  2. ALPHAGAN [Concomitant]

REACTIONS (7)
  - DIABETES MELLITUS INADEQUATE CONTROL [None]
  - DRUG DISPENSING ERROR [None]
  - HYPERTENSION [None]
  - INCORRECT DOSE ADMINISTERED [None]
  - PERIPHERAL ARTERIAL OCCLUSIVE DISEASE [None]
  - POOR QUALITY DRUG ADMINISTERED [None]
  - WRONG TECHNIQUE IN DRUG USAGE PROCESS [None]
